FAERS Safety Report 23618148 (Version 1)
Quarter: 2024Q1

REPORT INFORMATION
  Report Type: Spontaneous
  Country: US (occurrence: US)
  Receive Date: 20240311
  Receipt Date: 20240311
  Transmission Date: 20240410
  Serious: Yes (Hospitalization)
  Sender: FDA-Public Use
  Company Number: US-DRL-USA-LIT/USA/24/0003932

PATIENT
  Age: 66 Year
  Sex: Male

DRUGS (3)
  1. DAPTOMYCIN [Suspect]
     Active Substance: DAPTOMYCIN
     Indication: Beta haemolytic streptococcal infection
     Route: 042
  2. DAPTOMYCIN [Suspect]
     Active Substance: DAPTOMYCIN
     Indication: Arthritis bacterial
  3. CEPHALEXIN [Concomitant]
     Active Substance: CEPHALEXIN
     Indication: Pneumonia

REACTIONS (1)
  - Eosinophilic pneumonia acute [Recovering/Resolving]
